FAERS Safety Report 8837145 (Version 1)
Quarter: 2012Q4

REPORT INFORMATION
  Report Type: 
  Country: US (occurrence: US)
  Receive Date: 20121012
  Receipt Date: 20121012
  Transmission Date: 20130627
  Serious: Yes (Hospitalization)
  Sender: FDA-Public Use
  Company Number: US-AMGEN-USASP2012064858

PATIENT
  Sex: Female

DRUGS (1)
  1. ENBREL [Suspect]
     Indication: RHEUMATOID ARTHRITIS
     Dosage: 50 mg, qwk
     Dates: start: 1999

REACTIONS (7)
  - Cardiac pacemaker insertion [Recovered/Resolved]
  - Pain in extremity [Recovered/Resolved]
  - Oedema peripheral [Recovered/Resolved]
  - Hand deformity [Recovered/Resolved]
  - Contusion [Not Recovered/Not Resolved]
  - Injection site pain [Recovered/Resolved]
  - Anaemia [Not Recovered/Not Resolved]
